FAERS Safety Report 5679642 (Version 2)
Quarter: 2012Q4

REPORT INFORMATION
  Report Type: 
  Country: GB (occurrence: GB)
  Receive Date: 20041109
  Receipt Date: 20121112
  Transmission Date: 20130627
  Serious: Yes (Life-Threatening, Hospitalization)
  Sender: FDA-Public Use
  Company Number: GB-JNJFOC-20041100198

PATIENT
  Age: 80 Year
  Sex: Female
  Weight: 80 kg

DRUGS (11)
  1. IBUPROFEN [Suspect]
     Indication: PAIN
     Route: 048
     Dates: start: 20040809, end: 20040811
  2. CLEXANE [Suspect]
     Indication: THROMBOSIS PROPHYLAXIS
     Route: 058
     Dates: start: 20040809, end: 20040814
  3. RAMIPRIL [Suspect]
     Indication: HYPERTENSION
     Route: 048
     Dates: end: 20040811
  4. FRUSEMIDE (FUROSEMIDE) [Suspect]
     Indication: OEDEMA
     Route: 048
  5. FRUSEMIDE (FUROSEMIDE) [Suspect]
     Indication: CARDIAC FAILURE
     Route: 048
  6. HEPARIN-FRACTION, SODIUM SALT [Suspect]
     Indication: THROMBOSIS PROPHYLAXIS
     Route: 058
     Dates: start: 20040809, end: 20040814
  7. SERETIDE [Concomitant]
     Dosage: ^100^ BD
     Route: 055
  8. PARACETAMOL [Concomitant]
     Route: 048
  9. NYSTATIN [Concomitant]
     Route: 048
  10. FLUCLOXACILLIN [Concomitant]
     Route: 042
     Dates: start: 20040816, end: 20040823
  11. BENZYLPENICILLIN [Concomitant]
     Route: 042
     Dates: start: 20040816, end: 20040823

REACTIONS (8)
  - Renal failure acute [Recovered/Resolved]
  - Sepsis [Recovered/Resolved]
  - Gastric ulcer [Recovered/Resolved]
  - Gastritis [Recovered/Resolved]
  - Duodenal ulcer haemorrhage [Recovered/Resolved]
  - Oesophagitis [Recovered/Resolved]
  - Duodenitis [Recovered/Resolved]
  - Hiatus hernia [Recovered/Resolved]
